FAERS Safety Report 6382563-2 (Version None)
Quarter: 2009Q3

REPORT INFORMATION
  Report Type: 
  Country: None (occurrence: None)
  Receive Date: 20090930
  Receipt Date: 20090916
  Transmission Date: 20100115
  Serious: Yes (Hospitalization)
  Sender: FDA-Public Use
  Company Number: A0809402A

PATIENT
  Age: 36 Year
  Sex: Female

DRUGS (21)
  1. COREG [Suspect]
     Indication: CARDIAC FAILURE
     Dosage: 6.25MG TWICE PER DAY
     Route: 048
  2. PEGASYS [Suspect]
     Indication: HEPATITIS C
     Dosage: 180MCG WEEKLY
     Route: 058
     Dates: start: 20070924, end: 20080618
  3. COPEGUS [Suspect]
     Indication: HEPATITIS C
     Dosage: 400MG TWICE PER DAY
     Route: 048
     Dates: start: 20070924, end: 20080618
  4. WELLBUTRIN [Concomitant]
  5. LEXAPRO [Concomitant]
  6. PROVIGIL [Concomitant]
  7. NORETHINDRONE [Concomitant]
  8. VIVELLE [Concomitant]
  9. LEVOTHYROXINE SODIUM [Concomitant]
  10. ATACAND [Concomitant]
  11. DIGOXIN [Concomitant]
  12. KAPIDEX [Concomitant]
  13. CARAFATE [Concomitant]
  14. ESTROGEN [Concomitant]
  15. OMACOR [Concomitant]
  16. COENZYME Q10 [Concomitant]
  17. MILK THISTLE [Concomitant]
  18. CONCERTA [Concomitant]
  19. ESTRAGEST TTS [Concomitant]
  20. TRICOR [Concomitant]
  21. PROCRIT [Concomitant]

REACTIONS (30)
  - ANAEMIA [None]
  - ASTHENIA [None]
  - BACK PAIN [None]
  - CARDIAC FAILURE [None]
  - CONFUSIONAL STATE [None]
  - DECREASED APPETITE [None]
  - DISTURBANCE IN ATTENTION [None]
  - DIZZINESS [None]
  - DRY MOUTH [None]
  - DYSPNOEA [None]
  - DYSPNOEA EXERTIONAL [None]
  - EAR DISCOMFORT [None]
  - EARLY SATIETY [None]
  - FATIGUE [None]
  - HAEMATOCRIT DECREASED [None]
  - HAEMOGLOBIN DECREASED [None]
  - HEADACHE [None]
  - INFLUENZA LIKE ILLNESS [None]
  - IRRITABILITY [None]
  - LETHARGY [None]
  - NAUSEA [None]
  - OTITIS EXTERNA [None]
  - OTITIS MEDIA [None]
  - PANCYTOPENIA [None]
  - PERIPHERAL COLDNESS [None]
  - PRURITUS [None]
  - PYREXIA [None]
  - RASH [None]
  - URTICARIA [None]
  - WEIGHT DECREASED [None]
